FAERS Safety Report 9272867 (Version 1)
Quarter: 2013Q2

REPORT INFORMATION
  Report Type: Spontaneous
  Country: US (occurrence: US)
  Receive Date: 20130506
  Receipt Date: 20130506
  Transmission Date: 20140414
  Serious: No
  Sender: FDA-Public Use
  Company Number: US-JNJFOC-20130500027

PATIENT
  Age: 58 Year
  Sex: Female
  Weight: 72.58 kg

DRUGS (1)
  1. DURAGESIC [Suspect]
     Indication: PRODUCT USED FOR UNKNOWN INDICATION
     Route: 062

REACTIONS (3)
  - Drug diversion [Unknown]
  - Drug screen positive [Unknown]
  - Expired drug administered [Unknown]
